FAERS Safety Report 10060875 (Version 1)
Quarter: 2014Q2

REPORT INFORMATION
  Report Type: Spontaneous
  Country: US (occurrence: US)
  Receive Date: 20140404
  Receipt Date: 20140404
  Transmission Date: 20141212
  Serious: Yes (Other)
  Sender: FDA-Public Use
  Company Number: US-ASTRAZENECA-2014SE22578

PATIENT
  Age: 17257 Day
  Sex: Female
  Weight: 77.1 kg

DRUGS (5)
  1. TOPROL-XL [Suspect]
     Indication: HEART RATE INCREASED
     Route: 048
  2. SUDAFED [Suspect]
     Route: 065
  3. MULTIVITAMIN [Concomitant]
     Indication: SUPPLEMENTATION THERAPY
  4. VITAMIN D [Concomitant]
     Indication: SUPPLEMENTATION THERAPY
  5. CIPROFLOXACIN [Concomitant]
     Indication: INFECTION
     Dates: end: 20140320

REACTIONS (14)
  - Cardiac disorder [Not Recovered/Not Resolved]
  - Malaise [Unknown]
  - Escherichia infection [Unknown]
  - Kidney infection [Unknown]
  - Arrhythmia [Not Recovered/Not Resolved]
  - Body height decreased [Not Recovered/Not Resolved]
  - Heart rate increased [Not Recovered/Not Resolved]
  - Sleep disorder due to general medical condition, insomnia type [Not Recovered/Not Resolved]
  - Feeling abnormal [Not Recovered/Not Resolved]
  - Chromaturia [Unknown]
  - Hyperhidrosis [Recovering/Resolving]
  - Night sweats [Recovered/Resolved]
  - Off label use [Not Recovered/Not Resolved]
  - Drug ineffective for unapproved indication [Not Recovered/Not Resolved]
